FAERS Safety Report 5336001-9 (Version None)
Quarter: 2007Q1

REPORT INFORMATION
  Report Type: 
  Country: None (occurrence: None)
  Receive Date: 20070302
  Receipt Date: 20070111
  Transmission Date: 20070707
  Serious: No
  Sender: FDA-Public Use
  Company Number: PHEH2007US00849

PATIENT
  Age: 77 Year
  Sex: Female

DRUGS (4)
  1. ENABLEX [Suspect]
     Indication: HYPERTONIC BLADDER
     Dosage: SEE IMAGE
     Dates: start: 20060101, end: 20061201
  2. ENABLEX [Suspect]
     Indication: HYPERTONIC BLADDER
     Dosage: SEE IMAGE
     Dates: start: 20061201
  3. GLUCOPHAGE [Concomitant]
  4. ACIPHEX [Concomitant]

REACTIONS (1)
  - DRUG INEFFECTIVE [None]
